FAERS Safety Report 25261067 (Version 1)
Quarter: 2025Q2

REPORT INFORMATION
  Report Type: Spontaneous
  Country: US (occurrence: US)
  Receive Date: 20250501
  Receipt Date: 20250501
  Transmission Date: 20250717
  Serious: No
  Sender: MERCK SHARP & DOHME LLC
  Company Number: US-009507513-2275909

PATIENT
  Age: 54 Year
  Sex: Male

DRUGS (2)
  1. VERQUVO [Suspect]
     Active Substance: VERICIGUAT
     Indication: Product used for unknown indication
     Dosage: TAKE ONE TABLET BY MOUTH EVERY DAY?STRENGTH: 10 MG
     Route: 048
  2. SERTRALINE [Concomitant]
     Active Substance: SERTRALINE HYDROCHLORIDE

REACTIONS (2)
  - Product dose omission issue [Unknown]
  - No adverse event [Unknown]

NARRATIVE: CASE EVENT DATE: 20250409
